FAERS Safety Report 10661221 (Version 1)
Quarter: 2014Q4

REPORT INFORMATION
  Report Type: Report from Study
  Country: IT (occurrence: IT)
  Receive Date: 20141218
  Receipt Date: 20141218
  Transmission Date: 20150529
  Serious: Yes (Other)
  Sender: FDA-Public Use
  Company Number: IT-ROCHE-1507412

PATIENT
  Sex: Female

DRUGS (2)
  1. VINORELBINE [Suspect]
     Active Substance: VINORELBINE\VINORELBINE TARTRATE
     Indication: BREAST CANCER
     Dosage: ESCALATING DOSES OF VINORELBINE FROM 12.5 MG/M2 TO 25 MG/M2 INTRAVENOUSLY (I.V.) ON DAYS 1 AND 3 EVE
     Route: 042
  2. CAPECITABINE. [Suspect]
     Active Substance: CAPECITABINE
     Indication: BREAST CANCER
     Dosage: ESCALATING DOSES OF ORAL CAPECITABINE FROM 500 MG/M2 TO 1375 MG/M2 TWICE DAILY ON DAYS 1-14
     Route: 048

REACTIONS (12)
  - Neutropenia [Unknown]
  - Asthenia [Unknown]
  - Vomiting [Unknown]
  - Platelet count increased [Unknown]
  - Gamma-glutamyltransferase increased [Unknown]
  - Palmar-plantar erythrodysaesthesia syndrome [Unknown]
  - Anaemia [Unknown]
  - Leukopenia [Unknown]
  - Hyperbilirubinaemia [Unknown]
  - Constipation [Unknown]
  - Nausea [Unknown]
  - Diarrhoea [Unknown]
